FAERS Safety Report 8026793-2 (Version None)
Quarter: 2011Q4

REPORT INFORMATION
  Report Type: 
  Country: None (occurrence: None)
  Receive Date: 20111130
  Receipt Date: 20110815
  Transmission Date: 20120403
  Serious: Yes (Hospitalization, Other)
  Sender: FDA-Public Use
  Company Number: US200910005442

PATIENT
  Sex: Female

DRUGS (9)
  1. MAALOX (ALGELDRATE, MAGNESIUM HYDROXIDE) [Concomitant]
  2. AVAPRO [Concomitant]
  3. BYETTA [Suspect]
  4. GLUCOPHAGE [Concomitant]
  5. EXENATIDE (EXENATIDE PEN UNKNOWN STRENGTH) [Concomitant]
  6. ACETAMINOPHEN [Concomitant]
  7. LIPITOR [Concomitant]
  8. ACTOS [Concomitant]
  9. LANTUS [Concomitant]

REACTIONS (2)
  - RENAL FAILURE [None]
  - OFF LABEL USE [None]
